FAERS Safety Report 6618756-6 (Version None)
Quarter: 2010Q1

REPORT INFORMATION
  Report Type: 
  Country: None (occurrence: None)
  Receive Date: 20100305
  Receipt Date: 20100305
  Transmission Date: 20100710
  Serious: Yes (Other)
  Sender: FDA-Public Use
  Company Number: None

PATIENT
  Age: 43 Year
  Sex: Female

DRUGS (2)
  1. CLINDAMYCIN [Suspect]
     Indication: ORAL SURGERY
     Dosage: 1 CAPSULE 4X 3X
     Dates: start: 20091221
  2. METRONIDAZOLE [Suspect]
     Indication: CLOSTRIDIAL INFECTION
     Dosage: 1 3X 3X
     Dates: start: 20100121

REACTIONS (4)
  - APPARENT DEATH [None]
  - CLOSTRIDIAL INFECTION [None]
  - DIARRHOEA [None]
  - FEELING ABNORMAL [None]
